FAERS Safety Report 8157483-3 (Version None)
Quarter: 2012Q1

REPORT INFORMATION
  Report Type: 
  Country: None (occurrence: None)
  Receive Date: 20120222
  Receipt Date: 20120216
  Transmission Date: 20120608
  Serious: Yes (Other)
  Sender: FDA-Public Use
  Company Number: US-BAYER-2012-016539

PATIENT
  Age: 31 Year
  Sex: Female
  Weight: 77 kg

DRUGS (2)
  1. SERTRALINE HYDROCHLORIDE [Concomitant]
  2. ASPIRIN [Suspect]
     Indication: HEADACHE
     Dosage: UNK
     Route: 048
     Dates: start: 20120215, end: 20120216

REACTIONS (4)
  - HEARING IMPAIRED [None]
  - PAIN IN EXTREMITY [None]
  - TINNITUS [None]
  - HYPOACUSIS [None]
